FAERS Safety Report 14148596 (Version 1)
Quarter: 2017Q4

REPORT INFORMATION
  Report Type: Spontaneous
  Country: US (occurrence: US)
  Receive Date: 20171031
  Receipt Date: 20171031
  Transmission Date: 20180321
  Serious: Yes (Other)
  Sender: FDA-Public Use
  Company Number: None

PATIENT
  Age: 53 Year
  Sex: Female
  Weight: 47.25 kg

DRUGS (15)
  1. UCERIC [Concomitant]
  2. TRANSILAST [Concomitant]
  3. ALLEGRA [Suspect]
     Active Substance: FEXOFENADINE HYDROCHLORIDE
     Indication: PRODUCT USED FOR UNKNOWN INDICATION
     Route: 048
     Dates: start: 20170130, end: 20170330
  4. LIOTHYRINONE [Concomitant]
  5. B VITAMINS [Concomitant]
     Active Substance: CYANOCOBALAMIN\DEXPANTHENOL\NIACINAMIDE\PYRIDOXINE HYDROCHLORIDE\RIBOFLAVIN 5^-PHOSPHATE SODIUM\THIAMINE HYDROCHLORIDE\VITAMIN B COMPLEX
  6. ASACOL [Concomitant]
     Active Substance: MESALAMINE
  7. HYDROCORTISONE. [Concomitant]
     Active Substance: HYDROCORTISONE
  8. SODIUM CROMYLIN [Concomitant]
  9. MELAMINE RECTAL [Concomitant]
  10. BUTYRATE [Concomitant]
  11. SODIUM CROMYLIN [Suspect]
     Active Substance: CROMOLYN SODIUM
     Indication: PRODUCT USED FOR UNKNOWN INDICATION
     Route: 048
     Dates: start: 20170130, end: 20170330
  12. LOW DOSE NALTREXONE [Concomitant]
     Active Substance: NALTREXONE
  13. KETOTIPHIN [Concomitant]
  14. PROGESTERONE CREAM [Concomitant]
     Active Substance: PROGESTERONE
  15. TESTOSTERONE CREAM [Concomitant]
     Active Substance: TESTOSTERONE

REACTIONS (5)
  - Fatigue [None]
  - Gastrointestinal haemorrhage [None]
  - Ocular discomfort [None]
  - Product formulation issue [None]
  - Spinal pain [None]

NARRATIVE: CASE EVENT DATE: 20170202
